FAERS Safety Report 7777435-2 (Version None)
Quarter: 2011Q3

REPORT INFORMATION
  Report Type: 
  Country: None (occurrence: None)
  Receive Date: 20110922
  Receipt Date: 20110916
  Transmission Date: 20111222
  Serious: Yes (Hospitalization, Other)
  Sender: FDA-Public Use
  Company Number: 2009-190399-NL

PATIENT
  Age: 34 Year
  Sex: Female
  Weight: 72.6 kg

DRUGS (4)
  1. NUVARING [Suspect]
     Indication: MENSTRUATION IRREGULAR
     Dates: start: 20070209, end: 20070224
  2. NUVARING [Suspect]
     Indication: OVARIAN CYST
     Dates: start: 20070209, end: 20070224
  3. NUVARING [Suspect]
     Indication: ENDOMETRIOSIS
     Dates: start: 20070209, end: 20070224
  4. GLUCOPHAGE [Concomitant]

REACTIONS (45)
  - ABDOMINAL PAIN LOWER [None]
  - OVARIAN CYST RUPTURED [None]
  - BRONCHITIS [None]
  - MIGRAINE [None]
  - HYPOAESTHESIA [None]
  - OEDEMA PERIPHERAL [None]
  - CAVERNOUS SINUS THROMBOSIS [None]
  - VISUAL IMPAIRMENT [None]
  - EMOTIONAL POVERTY [None]
  - POLYP [None]
  - INTRACRANIAL PRESSURE INCREASED [None]
  - BALANCE DISORDER [None]
  - CONSTIPATION [None]
  - VOMITING [None]
  - CYST [None]
  - SPINAL FRACTURE [None]
  - DIZZINESS [None]
  - FATIGUE [None]
  - EPISTAXIS [None]
  - NAUSEA [None]
  - PAIN IN EXTREMITY [None]
  - METABOLIC SYNDROME [None]
  - IMPAIRED WORK ABILITY [None]
  - TRANSVERSE SINUS THROMBOSIS [None]
  - PRURITUS [None]
  - INCORRECT DOSE ADMINISTERED [None]
  - SINUSITIS [None]
  - NIGHT SWEATS [None]
  - ABDOMINAL PAIN [None]
  - PELVIC PAIN [None]
  - CEREBROVASCULAR ACCIDENT [None]
  - HEADACHE [None]
  - VISION BLURRED [None]
  - THROMBOSIS [None]
  - HAEMATEMESIS [None]
  - AMNESIA [None]
  - PAIN [None]
  - IMPAIRED DRIVING ABILITY [None]
  - HYPERCOAGULATION [None]
  - DRUG INTOLERANCE [None]
  - PARAESTHESIA [None]
  - PYREXIA [None]
  - MENTAL STATUS CHANGES [None]
  - HAEMORRHAGE INTRACRANIAL [None]
  - STRESS [None]
